FAERS Safety Report 6134027-9 (Version None)
Quarter: 2009Q1

REPORT INFORMATION
  Report Type: 
  Country: None (occurrence: None)
  Receive Date: 20090323
  Receipt Date: 20090312
  Transmission Date: 20090719
  Serious: Yes (Other)
  Sender: FDA-Public Use
  Company Number: AEUSA200900044

PATIENT
  Age: 51 Year
  Sex: Female

DRUGS (3)
  1. GAMASTAN [Suspect]
     Indication: IMMUNODEFICIENCY
     Dosage: 1 ML;QW:IM
     Route: 030
     Dates: end: 20090311
  2. PREMARIN [Concomitant]
  3. FLONASE [Concomitant]

REACTIONS (8)
  - FATIGUE [None]
  - MEDICATION ERROR [None]
  - MUSCLE TIGHTNESS [None]
  - MUSCULAR WEAKNESS [None]
  - NAUSEA [None]
  - PALPITATIONS [None]
  - POOR QUALITY DRUG ADMINISTERED [None]
  - TREMOR [None]
